FAERS Safety Report 11835947 (Version 2)
Quarter: 2015Q4

REPORT INFORMATION
  Report Type: Report from Study
  Country: US (occurrence: US)
  Receive Date: 20151215
  Receipt Date: 20151217
  Transmission Date: 20160305
  Serious: Yes (Hospitalization)
  Sender: FDA-Public Use
  Company Number: US-AMGEN-USASL2015132469

PATIENT
  Age: 66 Year
  Sex: Female
  Weight: 73.4 kg

DRUGS (8)
  1. AMLODIPINE [Concomitant]
     Active Substance: AMLODIPINE BESYLATE
     Dosage: 10 MG, QD
  2. TOPROL XL [Concomitant]
     Active Substance: METOPROLOL SUCCINATE
     Dosage: 50 MG, QD
  3. AMARYL [Concomitant]
     Active Substance: GLIMEPIRIDE
     Dosage: UNK
  4. DEXAMETHASONE. [Concomitant]
     Active Substance: DEXAMETHASONE
     Indication: PLASMA CELL MYELOMA
     Dosage: 4 MG, D1, 2, 8, 9, 15, 16, -Q28
     Route: 042
     Dates: start: 20150720
  5. HIPREX [Concomitant]
     Active Substance: METHENAMINE HIPPURATE
     Indication: URINARY TRACT INFECTION
     Dosage: UNK
  6. KYPROLIS [Suspect]
     Active Substance: CARFILZOMIB
     Indication: PLASMA CELL MYELOMA
     Dosage: 20 MG/M2, D1, 2, 8, 9, 15, 16 Q28 DAY
     Route: 042
     Dates: start: 20150720
  7. ATIVAN [Concomitant]
     Active Substance: LORAZEPAM
     Dosage: UNK
  8. DILAUDID [Concomitant]
     Active Substance: HYDROMORPHONE HYDROCHLORIDE
     Dosage: UNK

REACTIONS (3)
  - Confusional state [Unknown]
  - Lethargy [Recovered/Resolved]
  - Hypoglycaemia [Unknown]

NARRATIVE: CASE EVENT DATE: 2015
